FAERS Safety Report 5963343-6 (Version None)
Quarter: 2008Q4

REPORT INFORMATION
  Report Type: 
  Country: None (occurrence: None)
  Receive Date: 20081124
  Receipt Date: 20081119
  Transmission Date: 20090506
  Serious: Yes (Death)
  Sender: FDA-Public Use
  Company Number: A0757467A

PATIENT
  Age: 72 Year
  Sex: Male
  Weight: 42 kg

DRUGS (4)
  1. SERETIDE [Suspect]
     Dosage: 1PUFF TWICE PER DAY
     Route: 055
     Dates: start: 20080317, end: 20080917
  2. ACETYLCYSTEINE [Concomitant]
     Dates: start: 20030101, end: 20080917
  3. ASPIRIN [Concomitant]
     Dates: start: 20050101, end: 20080917
  4. PREDNISONE TAB [Concomitant]
     Dates: start: 20070501, end: 20080917

REACTIONS (1)
  - DEATH [None]
